FAERS Safety Report 26175703 (Version 1)
Quarter: 2025Q4

REPORT INFORMATION
  Report Type: Spontaneous
  Country: US (occurrence: US)
  Receive Date: 20251218
  Receipt Date: 20251218
  Transmission Date: 20260118
  Serious: No
  Sender: MERCK SHARP & DOHME LLC
  Company Number: US-009507513-2355502

PATIENT
  Sex: Female
  Weight: 49 kg

DRUGS (13)
  1. WINREVAIR [Suspect]
     Active Substance: SOTATERCEPT-CSRK
     Indication: Product used for unknown indication
  2. WINREVAIR [Suspect]
     Active Substance: SOTATERCEPT-CSRK
  3. WINREVAIR [Suspect]
     Active Substance: SOTATERCEPT-CSRK
  4. WINREVAIR [Suspect]
     Active Substance: SOTATERCEPT-CSRK
  5. ORENITRAM [Concomitant]
     Active Substance: TREPROSTINIL
     Indication: Pulmonary arterial hypertension
     Dosage: TIME INTERVAL: 0.33333333 DAYS: 2.5 MG, 1 MG, 0.125 MG AND 0.25 MG; CURRENT DOSE AT 3.875 MG
     Route: 048
     Dates: start: 20230228
  6. FUROSEMIDE [Concomitant]
     Active Substance: FUROSEMIDE
  7. ADEMPAS [Concomitant]
     Active Substance: RIOCIGUAT
  8. VITAMINS [Concomitant]
     Active Substance: VITAMINS
  9. PEPCID [Concomitant]
     Active Substance: FAMOTIDINE
  10. Tylenol extra strength (Paracetamol) [Concomitant]
  11. ELIQUIS [Concomitant]
     Active Substance: APIXABAN
  12. OPSUMIT [Concomitant]
     Active Substance: MACITENTAN
  13. OXYGEN [Concomitant]
     Active Substance: OXYGEN

REACTIONS (1)
  - Nausea [Unknown]
